FAERS Safety Report 12449214 (Version 2)
Quarter: 2016Q2

REPORT INFORMATION
  Report Type: Report from Study
  Country: US (occurrence: US)
  Receive Date: 20160608
  Receipt Date: 20160621
  Transmission Date: 20160815
  Serious: Yes (Death, Hospitalization)
  Sender: FDA-Public Use
  Company Number: US-ACTELION-A-US2016-137043

PATIENT
  Age: 43 Year
  Sex: Male

DRUGS (2)
  1. OPSUMIT [Suspect]
     Active Substance: MACITENTAN
     Indication: PULMONARY ARTERIAL HYPERTENSION
     Dosage: 10 MG, QD
     Route: 048
  2. VELETRI [Suspect]
     Active Substance: EPOPROSTENOL
     Indication: PULMONARY ARTERIAL HYPERTENSION
     Dosage: 19.06 NG/KG, PER MIN
     Route: 042
     Dates: start: 20160205, end: 20160526

REACTIONS (4)
  - Pulmonary arterial hypertension [Fatal]
  - Disease progression [Fatal]
  - Catheter site infection [Recovered/Resolved]
  - Catheter site inflammation [Recovered/Resolved]

NARRATIVE: CASE EVENT DATE: 20160526
